FAERS Safety Report 7177292-1 (Version None)
Quarter: 2010Q4

REPORT INFORMATION
  Report Type: 
  Country: None (occurrence: None)
  Receive Date: 20101216
  Receipt Date: 20101216
  Transmission Date: 20110411
  Serious: No
  Sender: FDA-Public Use
  Company Number: None

PATIENT
  Age: 59 Year
  Sex: Female
  Weight: 113.3993 kg

DRUGS (2)
  1. CIPROFLOXACIN [Suspect]
     Indication: IMPLANT SITE INFECTION
     Dosage: 500 MG BID PO
     Route: 048
     Dates: start: 20100402, end: 20100528
  2. PREDNISONE [Concomitant]

REACTIONS (9)
  - DIPLOPIA [None]
  - EYE PAIN [None]
  - GAIT DISTURBANCE [None]
  - MUSCULAR WEAKNESS [None]
  - MUSCULOSKELETAL STIFFNESS [None]
  - OEDEMA PERIPHERAL [None]
  - PAIN IN EXTREMITY [None]
  - PRURITUS [None]
  - TENDONITIS [None]
